FAERS Safety Report 8839404 (Version 1)
Quarter: 2012Q4

REPORT INFORMATION
  Report Type: Spontaneous
  Country: US (occurrence: None)
  Receive Date: 20121012
  Receipt Date: 20121012
  Transmission Date: 20130627
  Serious: Yes (Disabling)
  Sender: FDA-Public Use
  Company Number: None

PATIENT
  Age: 49 Year
  Sex: Female
  Weight: 59.88 kg

DRUGS (1)
  1. LEVOFLOXACIN [Suspect]
     Indication: EAR INFECTION
     Route: 048
     Dates: start: 20120910, end: 20120920

REACTIONS (14)
  - Pain in extremity [None]
  - Arthralgia [None]
  - Gait disturbance [None]
  - Weight bearing difficulty [None]
  - Depression [None]
  - Fatigue [None]
  - Activities of daily living impaired [None]
  - Insomnia [None]
  - Paraesthesia [None]
  - Oral mucosal blistering [None]
  - Stomatitis [None]
  - Oedema mouth [None]
  - Oral pain [None]
  - Tongue blistering [None]
